FAERS Safety Report 16711720 (Version 2)
Quarter: 2019Q3

REPORT INFORMATION
  Report Type: Report from Study
  Country: US (occurrence: US)
  Receive Date: 20190816
  Receipt Date: 20190906
  Transmission Date: 20191004
  Serious: No
  Sender: FDA-Public Use
  Company Number: US-SA-2019SA224314

PATIENT
  Age: 69 Year
  Sex: Female

DRUGS (3)
  1. TERIFLUNOMIDE. [Suspect]
     Active Substance: TERIFLUNOMIDE
     Dosage: 7 MG
     Dates: start: 20190702, end: 20190707
  2. TERIFLUNOMIDE. [Suspect]
     Active Substance: TERIFLUNOMIDE
     Dosage: 14 MG,QD
     Route: 048
     Dates: start: 20190708, end: 20190825
  3. TERIFLUNOMIDE. [Suspect]
     Active Substance: TERIFLUNOMIDE
     Indication: MULTIPLE SCLEROSIS
     Dosage: 1 DF, QD
     Route: 048
     Dates: start: 201906

REACTIONS (7)
  - Cough [Unknown]
  - Muscle spasms [Unknown]
  - Urinary tract infection [Recovered/Resolved]
  - Alopecia [Recovered/Resolved]
  - Diarrhoea [Unknown]
  - Muscular weakness [Unknown]
  - Throat clearing [Unknown]

NARRATIVE: CASE EVENT DATE: 2019
